FAERS Safety Report 5835438-9 (Version None)
Quarter: 2008Q3

REPORT INFORMATION
  Report Type: 
  Country: None (occurrence: None)
  Receive Date: 20080806
  Receipt Date: 20080728
  Transmission Date: 20090109
  Serious: Yes (Hospitalization, Other)
  Sender: FDA-Public Use
  Company Number: FR-BAXTER-2008BH003636

PATIENT
  Age: 12 Year
  Sex: Male

DRUGS (5)
  1. GAMMAGARD S/D [Suspect]
     Indication: THROMBOCYTOPENIC PURPURA
     Route: 042
     Dates: start: 20080319, end: 20080319
  2. GAMMAGARD S/D [Suspect]
     Route: 042
     Dates: start: 20080319, end: 20080319
  3. RHOPHYLAC [Suspect]
     Indication: THROMBOCYTOPENIC PURPURA
     Route: 042
     Dates: start: 20080322
  4. PREVISCAN [Concomitant]
     Indication: CARDIOMYOPATHY
     Dates: start: 19960101
  5. PLATELETS [Concomitant]
     Indication: EPISTAXIS
     Dates: start: 20080319

REACTIONS (7)
  - EPSTEIN-BARR VIRUS INFECTION [None]
  - HAEMOLYTIC ANAEMIA [None]
  - HEADACHE [None]
  - MYCOPLASMA SEROLOGY POSITIVE [None]
  - PYREXIA [None]
  - THROMBOCYTOPENIA [None]
  - VOMITING [None]
